FAERS Safety Report 18293828 (Version 2)
Quarter: 2021Q1

REPORT INFORMATION
  Report Type: Other
  Country: US (occurrence: US)
  Receive Date: 20200921
  Receipt Date: 20210320
  Transmission Date: 20210419
  Serious: No
  Sender: FDA-Public Use
  Company Number: US-ACORDA-ACO_165694_2020

PATIENT
  Age: 71 Year
  Sex: Male

DRUGS (6)
  1. APOKYN [Suspect]
     Active Substance: APOMORPHINE HYDROCHLORIDE
     Indication: PRODUCT USED FOR UNKNOWN INDICATION
     Dosage: UNK
     Route: 065
  2. INBRIJA [Suspect]
     Active Substance: LEVODOPA
     Indication: PARKINSON^S DISEASE
     Dosage: 84 MILLIGRAM, PRN, UPTO 5 TIMES DAILY
  3. APOKYN [Suspect]
     Active Substance: APOMORPHINE HYDROCHLORIDE
     Dosage: REDUCED TO 0.3 ML FOUR TO FIVE TIMES PER DAY
     Route: 065
  4. INBRIJA [Suspect]
     Active Substance: LEVODOPA
     Dosage: 84 MILLIGRAM, PRN, UPTO 5 TIMES DAILY
  5. RYTARY [Suspect]
     Active Substance: CARBIDOPA\LEVODOPA
     Indication: PRODUCT USED FOR UNKNOWN INDICATION
     Dosage: UNK
     Route: 065
  6. MILK OF MAGNESIA [Suspect]
     Active Substance: MAGNESIUM HYDROXIDE
     Indication: PRODUCT USED FOR UNKNOWN INDICATION
     Dosage: UNK
     Route: 065

REACTIONS (24)
  - Gait disturbance [Unknown]
  - Blood pressure decreased [Unknown]
  - Hypopnoea [Unknown]
  - Metabolic disorder [Unknown]
  - Frustration tolerance decreased [Unknown]
  - General physical health deterioration [Unknown]
  - Incontinence [Unknown]
  - Aggression [Unknown]
  - Confusional state [Unknown]
  - Salivary hypersecretion [Unknown]
  - Tongue disorder [Unknown]
  - Parkinson^s disease [Unknown]
  - Lip discolouration [Unknown]
  - Dehydration [Unknown]
  - Somnolence [Unknown]
  - Dysarthria [Unknown]
  - Diarrhoea [Unknown]
  - Prostatomegaly [Unknown]
  - Sensitivity to weather change [Unknown]
  - Oxygen saturation decreased [Unknown]
  - Urinary tract infection [Unknown]
  - Weight decreased [Unknown]
  - Tooth extraction [Unknown]
  - Agitation [Unknown]

NARRATIVE: CASE EVENT DATE: 202010
